FAERS Safety Report 17585279 (Version 2)
Quarter: 2020Q2

REPORT INFORMATION
  Report Type: Spontaneous
  Country: GB (occurrence: GB)
  Receive Date: 20200326
  Receipt Date: 20200507
  Transmission Date: 20200713
  Serious: Yes (Hospitalization)
  Sender: FDA-Public Use
  Company Number: GB-MYLANLABS-2020M1031574

PATIENT
  Age: 60 Year
  Sex: Male

DRUGS (3)
  1. METFORMIN [Concomitant]
     Active Substance: METFORMIN HYDROCHLORIDE
     Dosage: 3 GRAM, QD
  2. DOXYCYCLINE. [Suspect]
     Active Substance: DOXYCYCLINE
     Indication: PRODUCT USED FOR UNKNOWN INDICATION
     Dosage: UNSURE
     Route: 048
     Dates: start: 201909, end: 201909
  3. GLICLAZIDE [Concomitant]
     Active Substance: GLICLAZIDE
     Dosage: 240 MILLIGRAM, 80 MG MORNING, LUNCH 160 MG TEA

REACTIONS (1)
  - Myasthenia gravis crisis [Not Recovered/Not Resolved]

NARRATIVE: CASE EVENT DATE: 201909
